FAERS Safety Report 24144753 (Version 2)
Quarter: 2024Q4

REPORT INFORMATION
  Report Type: Spontaneous
  Country: US (occurrence: US)
  Receive Date: 20240729
  Receipt Date: 20241030
  Transmission Date: 20250115
  Serious: No
  Sender: TAKEDA
  Company Number: US-TAKEDA-2024TUS075368

PATIENT
  Sex: Male
  Weight: 64 kg

DRUGS (2)
  1. LIVTENCITY [Suspect]
     Active Substance: MARIBAVIR
     Indication: Cytomegalovirus infection
     Dosage: 400 MILLIGRAM, BID
     Route: 065
     Dates: start: 20240703
  2. LIVTENCITY [Suspect]
     Active Substance: MARIBAVIR
     Dosage: UNK UNK, BID
     Route: 065
     Dates: start: 202407, end: 20241029

REACTIONS (1)
  - Taste disorder [Unknown]
